FAERS Safety Report 8229041-3 (Version None)
Quarter: 2012Q1

REPORT INFORMATION
  Report Type: 
  Country: None (occurrence: None)
  Receive Date: 20120322
  Receipt Date: 20120320
  Transmission Date: 20120608
  Serious: Yes (Hospitalization, Other)
  Sender: FDA-Public Use
  Company Number: US-MERCK-1108USA02950

PATIENT
  Age: 77 Year
  Sex: Female
  Weight: 61 kg

DRUGS (7)
  1. FOSAMAX [Suspect]
     Route: 048
     Dates: start: 20080101, end: 20100407
  2. FOSAMAX [Suspect]
     Indication: PROPHYLAXIS
     Route: 048
     Dates: start: 20050101
  3. FOSAMAX [Suspect]
     Indication: OSTEOPOROSIS
     Route: 048
     Dates: start: 20050101
  4. PRILOSEC [Concomitant]
     Indication: DYSPEPSIA
     Route: 065
     Dates: start: 20000101
  5. VITAMINS (UNSPECIFIED) [Concomitant]
     Route: 065
  6. CALCIUM (UNSPECIFIED) [Concomitant]
     Route: 065
  7. PLAQUENIL [Concomitant]
     Indication: SYSTEMIC LUPUS ERYTHEMATOSUS
     Route: 065
     Dates: start: 20000101

REACTIONS (31)
  - LUNG DISORDER [None]
  - VENTRICULAR EXTRASYSTOLES [None]
  - ARRHYTHMIA [None]
  - AORTIC CALCIFICATION [None]
  - CARDIAC MURMUR [None]
  - HYPONATRAEMIA [None]
  - HYPERTENSION [None]
  - TREATMENT NONCOMPLIANCE [None]
  - ANAEMIA POSTOPERATIVE [None]
  - CORONARY ARTERY DISEASE [None]
  - FALL [None]
  - ARTERIOSCLEROSIS CORONARY ARTERY [None]
  - ATRIAL FLUTTER [None]
  - CARDIAC FAILURE CONGESTIVE [None]
  - CARDIAC DISORDER [None]
  - DYSPNOEA [None]
  - FATIGUE [None]
  - CHEST PAIN [None]
  - BUNDLE BRANCH BLOCK LEFT [None]
  - AORTIC VALVE DISEASE [None]
  - PLEURAL EFFUSION [None]
  - TRICUSPID VALVE INCOMPETENCE [None]
  - ADVERSE DRUG REACTION [None]
  - GASTROOESOPHAGEAL REFLUX DISEASE [None]
  - COUGH [None]
  - AORTIC STENOSIS [None]
  - FEMUR FRACTURE [None]
  - ESSENTIAL HYPERTENSION [None]
  - OSTEOARTHRITIS [None]
  - BRADYCARDIA [None]
  - ATRIAL FIBRILLATION [None]
